FAERS Safety Report 21338393 (Version 1)
Quarter: 2022Q3

REPORT INFORMATION
  Report Type: Spontaneous
  Country: GB (occurrence: GB)
  Receive Date: 20220915
  Receipt Date: 20220915
  Transmission Date: 20221026
  Serious: Yes (Life-Threatening, Disabling, Other)
  Sender: FDA-Public Use
  Company Number: None

PATIENT
  Age: 12 Month
  Sex: Male

DRUGS (5)
  1. LORAZEPAM [Suspect]
     Active Substance: LORAZEPAM
     Indication: Status epilepticus
     Dosage: 0.9 MG, SINGLE, STAT (IMMEDIATELY, AT ONCE) DOSE; 4MG/1ML AMPOULES (HAD ALREADY BEEN GIVEN)
     Route: 040
  2. GAVISCON INFANT [Concomitant]
     Dosage: 1 DF, EVERY 4 HRS, SACHET WITH FEEDS (FORUM HEALTH PRODUCTS LTD)
     Route: 048
  3. LEVETIRACETAM [Concomitant]
     Active Substance: LEVETIRACETAM
     Dosage: 380 MG, 2X/DAY, 100MG/ML (CRESCENT BRAND; SUGAR FREE)
     Route: 048
  4. OMEPRAZOLE MAGNESIUM [Concomitant]
     Active Substance: OMEPRAZOLE MAGNESIUM
     Dosage: 10 MG, 2X/DAY, SANDOZ LTD
     Route: 048
  5. ZONISAMIDE [Concomitant]
     Active Substance: ZONISAMIDE
     Dosage: 5 MG, 1X/DAY, AT NIGHT; 100MG/5ML (DEZISON BRAND; SPECIAL ORDER)
     Route: 048

REACTIONS (1)
  - Respiratory depression [Recovered/Resolved]

NARRATIVE: CASE EVENT DATE: 20220824
